FAERS Safety Report 7125861-7 (Version None)
Quarter: 2010Q4

REPORT INFORMATION
  Report Type: 
  Country: None (occurrence: None)
  Receive Date: 20101129
  Receipt Date: 20101116
  Transmission Date: 20110411
  Serious: Yes (Disabling, Other)
  Sender: FDA-Public Use
  Company Number: GB-ELI_LILLY_AND_COMPANY-GB201011004167

PATIENT
  Age: 36 Year
  Sex: Male

DRUGS (6)
  1. CYMBALTA [Suspect]
     Indication: DEPRESSION
     Dosage: 60 MG, UNK
     Route: 048
     Dates: start: 20101006, end: 20101009
  2. TRAMADOL HYDROCHLORIDE [Concomitant]
  3. AMITRIPTYLINE [Concomitant]
     Indication: SLEEP DISORDER
     Dosage: 10 MG, UNK
     Dates: start: 20101007
  4. CELECOXIB [Concomitant]
  5. INSULIN [Concomitant]
  6. SIMVASTATIN [Concomitant]

REACTIONS (3)
  - BLADDER OBSTRUCTION [None]
  - DRUG INTERACTION [None]
  - SEROTONIN SYNDROME [None]
